FAERS Safety Report 6427945-5 (Version None)
Quarter: 2009Q4

REPORT INFORMATION
  Report Type: 
  Country: None (occurrence: None)
  Receive Date: 20091105
  Receipt Date: 20091022
  Transmission Date: 20100525
  Serious: Yes (Congenital Anomaly)
  Sender: FDA-Public Use
  Company Number: PHHY2009VE46597

PATIENT
  Age: 4 Year
  Sex: Female

DRUGS (1)
  1. GLEEVEC [Suspect]
     Route: 064

REACTIONS (4)
  - DRUG EXPOSURE DURING PREGNANCY [None]
  - HEMIVERTEBRA [None]
  - RIB DEFORMITY [None]
  - SPINE MALFORMATION [None]
